FAERS Safety Report 12727796 (Version 1)
Quarter: 2016Q3

REPORT INFORMATION
  Report Type: Spontaneous
  Country: CA (occurrence: CA)
  Receive Date: 20160909
  Receipt Date: 20160909
  Transmission Date: 20161109
  Serious: Yes (Other)
  Sender: FDA-Public Use
  Company Number: CA-AMGEN-CANSP2016120378

PATIENT
  Sex: Female

DRUGS (4)
  1. MTX [Concomitant]
     Active Substance: METHOTREXATE SODIUM
     Dosage: UNK UNK, QWK
  2. CHOLESTEROL [Concomitant]
     Active Substance: CHOLESTEROL
     Dosage: UNK, LOW DOSE
  3. FOLIC ACID. [Concomitant]
     Active Substance: FOLIC ACID
     Dosage: UNK
  4. ENBREL [Suspect]
     Active Substance: ETANERCEPT
     Indication: PSORIATIC ARTHROPATHY
     Dosage: 50 MG, QWK
     Route: 065
     Dates: start: 2014

REACTIONS (2)
  - Metastases to peritoneum [Not Recovered/Not Resolved]
  - Ovarian cancer metastatic [Not Recovered/Not Resolved]
